FAERS Safety Report 10196476 (Version 1)
Quarter: 2014Q2

REPORT INFORMATION
  Report Type: Spontaneous
  Country: US (occurrence: None)
  Receive Date: 20140522
  Receipt Date: 20140522
  Transmission Date: 20141212
  Serious: Yes (Other)
  Sender: FDA-Public Use
  Company Number: AUR-APL-2014-05962

PATIENT
  Sex: 0

DRUGS (2)
  1. MIRTAZAPINE [Suspect]
     Indication: HYPOTENSION
  2. SINEMET [Concomitant]

REACTIONS (2)
  - Heart rate increased [None]
  - Blood pressure decreased [None]
